FAERS Safety Report 8536725-6 (Version None)
Quarter: 2012Q3

REPORT INFORMATION
  Report Type: 
  Country: None (occurrence: None)
  Receive Date: 20120718
  Receipt Date: 20120718
  Transmission Date: 20120928
  Serious: No
  Sender: FDA-Public Use
  Company Number: None

PATIENT
  Sex: Female
  Weight: 73.6 kg

DRUGS (3)
  1. IFOSFAMIDE [Suspect]
     Dosage: 8208 G GIVEN 1,2,3 DAYS.
  2. PACLITAXEL [Suspect]
     Dosage: 231 MG
  3. NEULASTA [Suspect]
     Dosage: 6 MG

REACTIONS (1)
  - PLATELET COUNT DECREASED [None]
